FAERS Safety Report 11760043 (Version 1)
Quarter: 2015Q4

REPORT INFORMATION
  Report Type: Spontaneous
  Country: US (occurrence: US)
  Receive Date: 20151120
  Receipt Date: 20151120
  Transmission Date: 20160304
  Serious: No
  Sender: FDA-Public Use
  Company Number: US-ELI_LILLY_AND_COMPANY-US201210009892

PATIENT
  Age: 74 Year
  Sex: Female

DRUGS (1)
  1. FORTEO [Suspect]
     Active Substance: TERIPARATIDE
     Indication: OSTEOPOROSIS
     Dosage: 20 UG, QD
     Route: 065
     Dates: end: 20121029

REACTIONS (8)
  - Malaise [Unknown]
  - Fatigue [Unknown]
  - Dyspnoea [Unknown]
  - Intentional product misuse [Unknown]
  - Feeling abnormal [Unknown]
  - Anxiety [Unknown]
  - Dizziness postural [Unknown]
  - Dizziness [Unknown]

NARRATIVE: CASE EVENT DATE: 201210
